FAERS Safety Report 16640099 (Version 1)
Quarter: 2019Q3

REPORT INFORMATION
  Report Type: Spontaneous
  Country: PL (occurrence: PL)
  Receive Date: 20190727
  Receipt Date: 20190727
  Transmission Date: 20191004
  Serious: Yes (Hospitalization)
  Sender: FDA-Public Use
  Company Number: PL-009507513-1907POL012058

PATIENT
  Age: 74 Year
  Sex: Female
  Weight: 51.5 kg

DRUGS (4)
  1. ZEPATIER [Suspect]
     Active Substance: ELBASVIR\GRAZOPREVIR
     Indication: HEPATITIS C
     Dosage: 1X1 TABLET
     Route: 048
     Dates: start: 20190521, end: 20190715
  2. CO VALSACOR [Concomitant]
     Indication: HYPERTENSION
     Dosage: 1 X 160+12.5 (UNITS NOT PROVIDED)
  3. CARDILOPIN [Concomitant]
     Indication: HYPERTENSION
     Dosage: 1 X 5 MG
  4. LETROX [Concomitant]
     Active Substance: LEVOTHYROXINE SODIUM
     Indication: HYPOTHYROIDISM
     Dosage: 75 MICROGRAM
     Route: 048

REACTIONS (4)
  - Aspartate aminotransferase increased [Unknown]
  - Pyrexia [Recovered/Resolved]
  - Abdominal pain [Recovered/Resolved]
  - Alanine aminotransferase increased [Unknown]

NARRATIVE: CASE EVENT DATE: 20190713
